FAERS Safety Report 7111139-4 (Version None)
Quarter: 2010Q4

REPORT INFORMATION
  Report Type: 
  Country: None (occurrence: None)
  Receive Date: 20101118
  Receipt Date: 20091111
  Transmission Date: 20110411
  Serious: No
  Sender: FDA-Public Use
  Company Number: US-TEVA-214962USA

PATIENT
  Sex: Male
  Weight: 74.91 kg

DRUGS (2)
  1. ALBUTEROL SULFATE AUTOHALER [Suspect]
     Dosage: AS NEEDED
     Route: 055
     Dates: start: 20091001, end: 20091101
  2. SERETIDE [Concomitant]

REACTIONS (1)
  - DRUG INEFFECTIVE [None]
